FAERS Safety Report 25100603 (Version 1)
Quarter: 2025Q1

REPORT INFORMATION
  Report Type: Spontaneous
  Country: RU (occurrence: RU)
  Receive Date: 20250320
  Receipt Date: 20250320
  Transmission Date: 20250408
  Serious: Yes (Other)
  Sender: SANOFI AVENTIS
  Company Number: RU-SA-2025SA082076

PATIENT
  Age: 49 Year
  Sex: Female
  Weight: 92 kg

DRUGS (3)
  1. SOLIQUA 100/33 [Suspect]
     Active Substance: INSULIN GLARGINE\LIXISENATIDE
     Indication: Type 2 diabetes mellitus
     Dosage: 18 U, QD
     Route: 058
     Dates: start: 20250129, end: 20250129
  2. Golda mb [Concomitant]
     Indication: Type 2 diabetes mellitus
     Route: 048
     Dates: start: 20220401
  3. Evodin [Concomitant]
     Indication: Type 2 diabetes mellitus
     Route: 048
     Dates: start: 20230615

REACTIONS (1)
  - Angioedema [Recovered/Resolved]

NARRATIVE: CASE EVENT DATE: 20250129
